FAERS Safety Report 4444641-4 (Version None)
Quarter: 2004Q3

REPORT INFORMATION
  Report Type: 
  Country: None (occurrence: None)
  Receive Date: 20040909
  Receipt Date: 20040901
  Transmission Date: 20050211
  Serious: Yes (Hospitalization)
  Sender: FDA-Public Use
  Company Number: FR-JNJFOC-20040900512

PATIENT
  Age: 55 Year
  Sex: Male

DRUGS (10)
  1. DURAGESIC [Suspect]
     Route: 062
  2. LYSANXIA [Interacting]
     Indication: ANXIETY
     Route: 049
  3. LAMALINE [Concomitant]
  4. LAMALINE [Concomitant]
  5. LAMALINE [Concomitant]
  6. LAMALINE [Concomitant]
  7. MEPRONIZINE [Concomitant]
  8. MEPRONIZINE [Concomitant]
  9. NUROFEN [Concomitant]
  10. NOCTAMIDE [Concomitant]

REACTIONS (4)
  - COMA [None]
  - CONFUSIONAL STATE [None]
  - CYANOSIS [None]
  - HYPOXIA [None]
